FAERS Safety Report 17712297 (Version 1)
Quarter: 2020Q2

REPORT INFORMATION
  Report Type: Spontaneous
  Country: US (occurrence: US)
  Receive Date: 20200427
  Receipt Date: 20200427
  Transmission Date: 20200714
  Serious: Yes (Hospitalization)
  Sender: FDA-Public Use
  Company Number: US-VERTEX PHARMACEUTICALS-2020-009463

PATIENT
  Sex: Male
  Weight: 15 kg

DRUGS (1)
  1. ORKAMBI [Suspect]
     Active Substance: IVACAFTOR\LUMACAFTOR
     Indication: CYSTIC FIBROSIS
     Dosage: GRANULES (150 MG LUMACAFTOR/ 188 MG IVACAFTOR), BID
     Route: 048

REACTIONS (2)
  - Hospitalisation [Unknown]
  - Bronchitis [Unknown]
